FAERS Safety Report 7537899-6 (Version None)
Quarter: 2011Q2

REPORT INFORMATION
  Report Type: 
  Country: None (occurrence: None)
  Receive Date: 20110609
  Receipt Date: 20110603
  Transmission Date: 20111010
  Serious: Yes (Death, Hospitalization)
  Sender: FDA-Public Use
  Company Number: CZ-ABBOTT-11P-217-0729450-00

PATIENT
  Age: 76 Year
  Sex: Male
  Weight: 88.3 kg

DRUGS (11)
  1. CALCITRIOL [Concomitant]
     Indication: PRODUCT USED FOR UNKNOWN INDICATION
  2. FUROSEMIDE [Concomitant]
     Indication: FLUID RETENTION
     Route: 048
     Dates: start: 20110504, end: 20110531
  3. BISEPTOL [Concomitant]
     Indication: PRODUCT USED FOR UNKNOWN INDICATION
  4. ZEMPLAR [Suspect]
     Indication: HYPERPARATHYROIDISM SECONDARY
     Route: 048
     Dates: start: 20110506, end: 20110531
  5. CORDARONE [Concomitant]
     Indication: ISCHAEMIA
     Route: 048
     Dates: start: 20100428, end: 20110531
  6. CORDARONE [Concomitant]
     Indication: ARRHYTHMIA
  7. ROSUVASTATIN [Concomitant]
     Indication: PRODUCT USED FOR UNKNOWN INDICATION
  8. GLURENORM [Concomitant]
     Indication: TYPE 2 DIABETES MELLITUS
  9. SPIRONOLACTONE [Concomitant]
     Indication: PRODUCT USED FOR UNKNOWN INDICATION
  10. PANTOPRAZOLE [Concomitant]
     Indication: PRODUCT USED FOR UNKNOWN INDICATION
  11. ANOPYRIN [Concomitant]
     Indication: MYOCARDIAL ISCHAEMIA
     Route: 048
     Dates: start: 20100430, end: 20110531

REACTIONS (21)
  - FALL [None]
  - OXYGEN SATURATION DECREASED [None]
  - CHRONIC OBSTRUCTIVE PULMONARY DISEASE [None]
  - PERIPHERAL ARTERIAL OCCLUSIVE DISEASE [None]
  - VENOUS INSUFFICIENCY [None]
  - CARDIAC FAILURE CONGESTIVE [None]
  - PULMONARY EMBOLISM [None]
  - CONDITION AGGRAVATED [None]
  - JOINT INJURY [None]
  - CEREBROVASCULAR ACCIDENT [None]
  - ARRHYTHMIA [None]
  - HYPERLIPIDAEMIA [None]
  - ASTHMA [None]
  - MYOCARDIAL ISCHAEMIA [None]
  - TYPE 2 DIABETES MELLITUS [None]
  - ILL-DEFINED DISORDER [None]
  - ATRIAL FIBRILLATION [None]
  - PRESYNCOPE [None]
  - ARTERIOSCLEROSIS [None]
  - ORGAN FAILURE [None]
  - RENAL FAILURE CHRONIC [None]
